FAERS Safety Report 5292360-7 (Version None)
Quarter: 2007Q2

REPORT INFORMATION
  Report Type: 
  Country: None (occurrence: None)
  Receive Date: 20070410
  Receipt Date: 20070329
  Transmission Date: 20071010
  Serious: Yes (Other)
  Sender: FDA-Public Use
  Company Number: AU-PFIZER INC-2006154512

PATIENT
  Age: 45 Year
  Sex: Male

DRUGS (2)
  1. LIPITOR [Suspect]
     Dates: start: 20000101, end: 20061121
  2. FISH OIL [Concomitant]

REACTIONS (12)
  - ALOPECIA [None]
  - DERMATITIS ALLERGIC [None]
  - DRY SKIN [None]
  - FATIGUE [None]
  - HAIR DISORDER [None]
  - PHOTOSENSITIVITY REACTION [None]
  - RASH PAPULAR [None]
  - SKIN ATROPHY [None]
  - SKIN HYPERTROPHY [None]
  - SKIN LESION [None]
  - TEMPERATURE INTOLERANCE [None]
  - VITILIGO [None]
